FAERS Safety Report 8429670-8 (Version None)
Quarter: 2012Q2

REPORT INFORMATION
  Report Type: 
  Country: None (occurrence: None)
  Receive Date: 20120323
  Receipt Date: 20110221
  Transmission Date: 20120825
  Serious: Yes (Hospitalization, Other)
  Sender: FDA-Public Use
  Company Number: 163-21880-11022734

PATIENT
  Age: 70 Year
  Sex: Male

DRUGS (3)
  1. BLOOD (BLOOD AND RELATED PRODUCTS) [Concomitant]
  2. REVLIMID [Suspect]
     Indication: MYELODYSPLASTIC SYNDROME
     Dosage: 10 MG, QD X 21 DAYS OFF 7 DAYS, PO
     Route: 048
     Dates: start: 20110114, end: 20110214
  3. DIPYRIDAMOLE [Concomitant]

REACTIONS (5)
  - PYREXIA [None]
  - RED BLOOD CELL COUNT DECREASED [None]
  - WHITE BLOOD CELL COUNT DECREASED [None]
  - PLATELET COUNT DECREASED [None]
  - FATIGUE [None]
